FAERS Safety Report 5099785-3 (Version None)
Quarter: 2006Q3

REPORT INFORMATION
  Report Type: 
  Country: None (occurrence: None)
  Receive Date: 20060908
  Receipt Date: 20060828
  Transmission Date: 20061208
  Serious: Yes (Hospitalization)
  Sender: FDA-Public Use
  Company Number: 2006SE04644

PATIENT
  Age: 60 Year
  Sex: Male

DRUGS (2)
  1. XYLOCAINE [Suspect]
     Indication: LOCAL ANAESTHESIA
     Route: 040
     Dates: start: 20060815, end: 20060815
  2. MARCAINE [Concomitant]
     Indication: ANAESTHESIA
     Route: 040
     Dates: start: 20060815, end: 20060815

REACTIONS (3)
  - COLD SWEAT [None]
  - DIZZINESS [None]
  - NAUSEA [None]
